FAERS Safety Report 18887654 (Version 1)
Quarter: 2021Q1

REPORT INFORMATION
  Report Type: Report from Study
  Country: US (occurrence: US)
  Receive Date: 20210212
  Receipt Date: 20210212
  Transmission Date: 20210420
  Serious: Yes (Hospitalization, Other)
  Sender: FDA-Public Use
  Company Number: US-JNJFOC-20201211283

PATIENT
  Age: 77 Year
  Sex: Female
  Weight: 52.66 kg

DRUGS (5)
  1. MACITENTAN [Suspect]
     Active Substance: MACITENTAN
     Indication: PULMONARY ARTERIAL HYPERTENSION
     Route: 048
  2. SELEXIPAG [Suspect]
     Active Substance: SELEXIPAG
     Route: 048
  3. ELIQUIS [Concomitant]
     Active Substance: APIXABAN
  4. SELEXIPAG [Suspect]
     Active Substance: SELEXIPAG
     Indication: PULMONARY ARTERIAL HYPERTENSION
     Route: 048
  5. AMLODIPINE [Concomitant]
     Active Substance: AMLODIPINE BESYLATE

REACTIONS (9)
  - Diverticulitis [Unknown]
  - Internal haemorrhage [Unknown]
  - Pleurisy [Unknown]
  - Gastrointestinal disorder [Unknown]
  - Colitis [Unknown]
  - Radiotherapy [Unknown]
  - Abdominal pain [Unknown]
  - Throat cancer [Unknown]
  - Lung neoplasm malignant [Unknown]

NARRATIVE: CASE EVENT DATE: 20201114
